FAERS Safety Report 5384736-4 (Version None)
Quarter: 2007Q3

REPORT INFORMATION
  Report Type: 
  Country: None (occurrence: None)
  Receive Date: 20070706
  Receipt Date: 20070430
  Transmission Date: 20080115
  Serious: No
  Sender: FDA-Public Use
  Company Number: PHEH2007US06207

PATIENT
  Sex: Female

DRUGS (5)
  1. TEKTURNA [Suspect]
     Indication: HYPERTENSION
     Dosage: 300 MG; PO QD AT 9PM;ORAL
     Route: 048
     Dates: start: 20070409
  2. NORVASC [Suspect]
     Indication: HYPERTENSION
  3. COREG [Suspect]
     Indication: HYPERTENSION
  4. CLONIDINE [Suspect]
     Indication: HYPERTENSION
     Dosage: 0.3 MG;PRN;ORAL
     Route: 048
  5. HYTRIN [Concomitant]

REACTIONS (2)
  - BLOOD PRESSURE INADEQUATELY CONTROLLED [None]
  - BLOOD PRESSURE INCREASED [None]
